FAERS Safety Report 21320938 (Version 4)
Quarter: 2022Q4

REPORT INFORMATION
  Report Type: Report from Study
  Country: US (occurrence: US)
  Receive Date: 20220912
  Receipt Date: 20221031
  Transmission Date: 20230112
  Serious: No
  Sender: FDA-Public Use
  Company Number: US-NOVARTISTESTPH-NVSC2022US204925

PATIENT
  Age: 66 Year
  Sex: Female

DRUGS (1)
  1. LEQVIO [Suspect]
     Active Substance: INCLISIRAN SODIUM
     Indication: Product used for unknown indication
     Dosage: 284 MG, OTHER (INJECT ON DAY ONE AND AT 3 MONTHS; THEN EVERY 6 MONTHS FOLLOWING)
     Route: 058
     Dates: start: 20220822, end: 20220822

REACTIONS (18)
  - Rhinorrhoea [Unknown]
  - Oropharyngeal pain [Unknown]
  - Cough [Unknown]
  - Pyrexia [Unknown]
  - Pain [Unknown]
  - Feeling abnormal [Unknown]
  - Anxiety [Unknown]
  - Sinus pain [Unknown]
  - Tonsillitis [Unknown]
  - Nightmare [Unknown]
  - Electric shock [Unknown]
  - Dyspnoea [Unknown]
  - Chest pain [Unknown]
  - Back pain [Unknown]
  - Tinnitus [Unknown]
  - Fungal infection [Unknown]
  - Fatigue [Unknown]
  - Arthralgia [Not Recovered/Not Resolved]

NARRATIVE: CASE EVENT DATE: 20220829
